FAERS Safety Report 6576108-1 (Version None)
Quarter: 2010Q1

REPORT INFORMATION
  Report Type: 
  Country: None (occurrence: None)
  Receive Date: 20100209
  Receipt Date: 20100202
  Transmission Date: 20100710
  Serious: Yes (Death)
  Sender: FDA-Public Use
  Company Number: US-GILEAD-2010-0026485

PATIENT
  Sex: Female

DRUGS (13)
  1. LETAIRIS [Suspect]
     Indication: PULMONARY ARTERIAL HYPERTENSION
     Route: 048
     Dates: start: 20071115
  2. LIPITOR [Concomitant]
  3. LASIX [Concomitant]
  4. CARTIA XT [Concomitant]
  5. REVATIO [Concomitant]
  6. SPIRIVA [Concomitant]
  7. TUSSICAPS [Concomitant]
  8. ZOLOFT [Concomitant]
  9. PREDNISONE [Concomitant]
  10. LANTUS [Concomitant]
  11. METFORMIN HCL [Concomitant]
  12. NEXIUM [Concomitant]
  13. ACIPHEX [Concomitant]

REACTIONS (2)
  - CARDIAC FAILURE CONGESTIVE [None]
  - PULMONARY HYPERTENSION [None]
